FAERS Safety Report 5941158-2 (Version None)
Quarter: 2008Q4

REPORT INFORMATION
  Report Type: 
  Country: None (occurrence: None)
  Receive Date: 20081104
  Receipt Date: 20081023
  Transmission Date: 20090506
  Serious: Yes (Other)
  Sender: FDA-Public Use
  Company Number: US-PFIZER INC-2008089737

PATIENT
  Sex: Male

DRUGS (5)
  1. LYRICA [Suspect]
     Dates: start: 20080101
  2. GEODON [Suspect]
     Indication: BIPOLAR DISORDER
     Dates: start: 20080101
  3. LAMICTAL [Concomitant]
  4. DESVENLAFAXINE [Concomitant]
  5. CELEXA [Concomitant]

REACTIONS (4)
  - BIPOLAR DISORDER [None]
  - BLADDER DISORDER [None]
  - FEELING ABNORMAL [None]
  - FIBROMYALGIA [None]
